FAERS Safety Report 9992909 (Version 1)
Quarter: 2014Q1

REPORT INFORMATION
  Report Type: Report from Study
  Country: US (occurrence: US)
  Receive Date: 20140310
  Receipt Date: 20140310
  Transmission Date: 20141002
  Serious: No
  Sender: FDA-Public Use
  Company Number: US-ABBVIE-13P-163-1075948-00

PATIENT
  Sex: Female

DRUGS (1)
  1. LUPRON DEPOT [Suspect]
     Indication: PRODUCT USED FOR UNKNOWN INDICATION
     Dates: start: 201204

REACTIONS (3)
  - Menstruation irregular [Not Recovered/Not Resolved]
  - Muscle spasms [Not Recovered/Not Resolved]
  - Metrorrhagia [Not Recovered/Not Resolved]
